FAERS Safety Report 14673567 (Version 1)
Quarter: 2018Q1

REPORT INFORMATION
  Report Type: Spontaneous
  Country: US (occurrence: US)
  Receive Date: 20180322
  Receipt Date: 20180322
  Transmission Date: 20180509
  Serious: Yes (Hospitalization)
  Sender: FDA-Public Use
  Company Number: None

PATIENT
  Age: 16 Year
  Sex: Male

DRUGS (5)
  1. NOVOLIN R [Concomitant]
     Active Substance: INSULIN HUMAN
  2. LEVOTHYROXIN [Concomitant]
     Active Substance: LEVOTHYROXINE
  3. ABILIFY [Concomitant]
     Active Substance: ARIPIPRAZOLE
  4. PROTONIX [Concomitant]
     Active Substance: PANTOPRAZOLE SODIUM
  5. PULMOZYME [Suspect]
     Active Substance: DORNASE ALFA
     Indication: DIABETES MELLITUS
     Route: 055
     Dates: start: 20170921

REACTIONS (1)
  - Hospitalisation [None]

NARRATIVE: CASE EVENT DATE: 20180301
